FAERS Safety Report 11433467 (Version 1)
Quarter: 2015Q3

REPORT INFORMATION
  Report Type: Report from Study
  Country: JP (occurrence: JP)
  Receive Date: 20150831
  Receipt Date: 20150831
  Transmission Date: 20151125
  Serious: Yes (Hospitalization)
  Sender: FDA-Public Use
  Company Number: JP-ABBVIE-15K-087-1451069-00

PATIENT
  Age: 84 Year
  Sex: Male
  Weight: 61 kg

DRUGS (14)
  1. HUMIRA [Suspect]
     Active Substance: ADALIMUMAB
     Route: 058
     Dates: start: 20130917, end: 20130917
  2. VANCOMYCIN HYDROCHLORIDE. [Concomitant]
     Active Substance: VANCOMYCIN HYDROCHLORIDE
     Indication: BEHCET^S SYNDROME
     Route: 048
     Dates: end: 20130917
  3. HUMIRA [Suspect]
     Active Substance: ADALIMUMAB
     Route: 058
     Dates: start: 20131001
  4. PRELON [Concomitant]
     Indication: BEHCET^S SYNDROME
     Route: 048
     Dates: end: 20140304
  5. ISONIAZID. [Concomitant]
     Active Substance: ISONIAZID
     Indication: PROPHYLAXIS
     Route: 048
     Dates: start: 20130903
  6. FAMOTIDINE. [Concomitant]
     Active Substance: FAMOTIDINE
     Indication: PROPHYLAXIS
     Route: 048
  7. PREDNISOLONE. [Concomitant]
     Active Substance: PREDNISOLONE
     Indication: BEHCET^S SYNDROME
     Route: 048
     Dates: start: 20140305
  8. TRIAMCINOLONE ACETONIDE. [Concomitant]
     Active Substance: TRIAMCINOLONE ACETONIDE
     Indication: BEHCET^S SYNDROME
     Route: 061
     Dates: start: 20130903, end: 20130903
  9. ANTIBIOTICS-RESISTANT LACTIC ACID BACTERIAE [Concomitant]
     Active Substance: UNSPECIFIED INGREDIENT
     Indication: BEHCET^S SYNDROME
     Route: 048
     Dates: start: 20140106
  10. AZATHIOPRINE. [Concomitant]
     Active Substance: AZATHIOPRINE
     Indication: BEHCET^S SYNDROME
     Route: 048
  11. PROPIVERINE HYDROCHLORIDE [Concomitant]
     Active Substance: PROPIVERINE HYDROCHLORIDE
     Indication: PRODUCT USED FOR UNKNOWN INDICATION
     Route: 048
  12. REBAMIPIDE [Concomitant]
     Active Substance: REBAMIPIDE
     Indication: PROPHYLAXIS
     Route: 048
  13. HUMIRA [Suspect]
     Active Substance: ADALIMUMAB
     Indication: BEHCET^S SYNDROME
     Route: 058
     Dates: start: 20130902, end: 20130902
  14. MESALAZINE [Concomitant]
     Active Substance: MESALAMINE
     Indication: BEHCET^S SYNDROME
     Route: 048

REACTIONS (5)
  - Ileal ulcer [Recovering/Resolving]
  - Behcet^s syndrome [Unknown]
  - Aphthous ulcer [Unknown]
  - C-reactive protein increased [Unknown]
  - Oropharyngeal pain [Unknown]

NARRATIVE: CASE EVENT DATE: 201401
